FAERS Safety Report 17452696 (Version 1)
Quarter: 2020Q1

REPORT INFORMATION
  Report Type: Spontaneous
  Country: DE (occurrence: DE)
  Receive Date: 20200224
  Receipt Date: 20200224
  Transmission Date: 20200409
  Serious: Yes (Hospitalization)
  Sender: FDA-Public Use
  Company Number: DE-BAYER-2020-028976

PATIENT
  Age: 63 Year
  Sex: Female

DRUGS (1)
  1. BETAFERON [Suspect]
     Active Substance: INTERFERON BETA-1B
     Indication: RELAPSING-REMITTING MULTIPLE SCLEROSIS
     Dosage: 250 ?G
     Route: 058
     Dates: start: 201906

REACTIONS (2)
  - Cerebral infarction [Recovered/Resolved]
  - Carotid artery stenosis [None]

NARRATIVE: CASE EVENT DATE: 20200104
